FAERS Safety Report 10162229 (Version 1)
Quarter: 2014Q2

REPORT INFORMATION
  Report Type: Spontaneous
  Country: US (occurrence: None)
  Receive Date: 20140508
  Receipt Date: 20140508
  Transmission Date: 20141212
  Serious: Yes (Hospitalization)
  Sender: FDA-Public Use
  Company Number: None

PATIENT
  Age: 26 Year
  Sex: Male
  Weight: 72.58 kg

DRUGS (2)
  1. VIVITROL [Suspect]
     Indication: DRUG REHABILITATION
     Route: 030
  2. TRAZADONE [Concomitant]

REACTIONS (4)
  - Injection site abscess [None]
  - Injection site swelling [None]
  - Injection site erythema [None]
  - Injection site bruising [None]
